FAERS Safety Report 10206125 (Version 3)
Quarter: 2014Q2

REPORT INFORMATION
  Report Type: Spontaneous
  Country: US (occurrence: US)
  Receive Date: 20140530
  Receipt Date: 20140618
  Transmission Date: 20141212
  Serious: No
  Sender: FDA-Public Use
  Company Number: US-PFIZER INC-2014146897

PATIENT
  Age: 61 Year
  Sex: Male
  Weight: 83.9 kg

DRUGS (1)
  1. VIAGRA [Suspect]
     Indication: ERECTILE DYSFUNCTION
     Dosage: 100 MG, AS NEEDED
     Route: 048

REACTIONS (7)
  - Suspected counterfeit product [Unknown]
  - Flatulence [Unknown]
  - Frequent bowel movements [Unknown]
  - Drug ineffective [Unknown]
  - Nasal congestion [Unknown]
  - Flushing [Unknown]
  - Headache [Unknown]
